FAERS Safety Report 5129279-8 (Version None)
Quarter: 2006Q4

REPORT INFORMATION
  Report Type: 
  Country: None (occurrence: None)
  Receive Date: 20061012
  Receipt Date: 20060929
  Transmission Date: 20070319
  Serious: Yes (Other)
  Sender: FDA-Public Use
  Company Number: PAR_0848_2006

PATIENT
  Age: 76 Year
  Sex: Male

DRUGS (3)
  1. IBUPROFEN [Suspect]
     Dosage: 1600 MG QDAY; PO
     Route: 048
     Dates: end: 20060922
  2. ASPIRIN [Suspect]
     Dosage: 81 MG QDAY; PO
     Route: 048
     Dates: end: 20060922
  3. WARFARIN SODIUM [Suspect]
     Dosage: DF,

REACTIONS (2)
  - GASTROINTESTINAL HAEMORRHAGE [None]
  - MALLORY-WEISS SYNDROME [None]
